FAERS Safety Report 7924069-2 (Version None)
Quarter: 2011Q4

REPORT INFORMATION
  Report Type: 
  Country: None (occurrence: None)
  Receive Date: 20111117
  Receipt Date: 20110211
  Transmission Date: 20120403
  Serious: No
  Sender: FDA-Public Use
  Company Number: US-AMGEN-USASP2011008173

PATIENT
  Age: 52 Year
  Sex: Female

DRUGS (1)
  1. ENBREL [Suspect]
     Indication: PRODUCT USED FOR UNKNOWN INDICATION

REACTIONS (9)
  - OROPHARYNGEAL PAIN [None]
  - PYREXIA [None]
  - RETCHING [None]
  - DIARRHOEA [None]
  - FATIGUE [None]
  - INFLUENZA [None]
  - DECREASED APPETITE [None]
  - MALAISE [None]
  - NAUSEA [None]
